FAERS Safety Report 22098009 (Version 1)
Quarter: 2023Q1

REPORT INFORMATION
  Report Type: Report from Study
  Country: US (occurrence: US)
  Receive Date: 20230315
  Receipt Date: 20230315
  Transmission Date: 20230417
  Serious: No
  Sender: FDA-Public Use
  Company Number: US-002147023-NVSC2023US055190

PATIENT
  Age: 32 Year
  Sex: Female

DRUGS (2)
  1. KESIMPTA [Suspect]
     Active Substance: OFATUMUMAB
     Indication: Product used for unknown indication
     Dosage: UNK, QMO
     Route: 065
     Dates: start: 20221222
  2. KESIMPTA [Suspect]
     Active Substance: OFATUMUMAB
     Dosage: UNK
     Route: 065
     Dates: start: 20230219

REACTIONS (6)
  - Coordination abnormal [Unknown]
  - Feeling abnormal [Unknown]
  - Gait disturbance [Unknown]
  - Musculoskeletal discomfort [Unknown]
  - Pain in extremity [Unknown]
  - Fatigue [Unknown]

NARRATIVE: CASE EVENT DATE: 20230219
